FAERS Safety Report 14111595 (Version 1)
Quarter: 2017Q4

REPORT INFORMATION
  Report Type: Spontaneous
  Country: FR (occurrence: FR)
  Receive Date: 20171020
  Receipt Date: 20171020
  Transmission Date: 20180321
  Serious: Yes (Death, Congenital Anomaly)
  Sender: FDA-Public Use
  Company Number: FR-MERCK KGAA-2030952

PATIENT

DRUGS (7)
  1. CYCLOPHOSPHAMIDE. [Suspect]
     Active Substance: CYCLOPHOSPHAMIDE
  2. KYTRIL [Suspect]
     Active Substance: GRANISETRON HYDROCHLORIDE
  3. NOVOTHYROX [Suspect]
     Active Substance: LEVOTHYROXINE SODIUM
     Indication: HYPOTHYROIDISM
  4. EPIRUBICIN [Suspect]
     Active Substance: EPIRUBICIN
     Dates: start: 201701, end: 201703
  5. EMEND [Suspect]
     Active Substance: APREPITANT
  6. FLUOROURACIL. [Suspect]
     Active Substance: FLUOROURACIL
     Dates: start: 201701, end: 201703
  7. TAXOTERE [Suspect]
     Active Substance: DOCETAXEL
     Dates: start: 201704

REACTIONS (7)
  - Foetal exposure during pregnancy [Unknown]
  - Micrognathia [Fatal]
  - Multiple congenital abnormalities [Fatal]
  - Syndactyly [Fatal]
  - Limb reduction defect [Fatal]
  - Cardiac disorder [Fatal]
  - Hydrocephalus [Fatal]
